FAERS Safety Report 5836485-3 (Version None)
Quarter: 2008Q3

REPORT INFORMATION
  Report Type: 
  Country: None (occurrence: None)
  Receive Date: 20080807
  Receipt Date: 20080801
  Transmission Date: 20090109
  Serious: Yes (Death, Hospitalization, Other)
  Sender: FDA-Public Use
  Company Number: PHHY2008JP14407

PATIENT
  Age: 83 Year
  Sex: Male

DRUGS (3)
  1. ZOMETA [Suspect]
     Indication: HYPERCALCAEMIA
     Route: 042
  2. VINORELBINE [Concomitant]
  3. FLUID/ELECTROLYTE REPLACEMENT THERAPY [Concomitant]

REACTIONS (3)
  - ABDOMINAL PAIN [None]
  - CHOLECYSTITIS ACUTE [None]
  - MALIGNANT NEOPLASM PROGRESSION [None]
